FAERS Safety Report 10061091 (Version 1)
Quarter: 2014Q2

REPORT INFORMATION
  Report Type: Other
  Country: GB (occurrence: GB)
  Receive Date: 20140406
  Receipt Date: 20140406
  Transmission Date: 20141212
  Serious: Yes (Other)
  Sender: FDA-Public Use
  Company Number: GB-GLENMARK GENERICS INC.-2014GMK009072

PATIENT
  Age: 32 Year
  Sex: Female

DRUGS (7)
  1. MONTELUKAST [Suspect]
     Indication: PRODUCT USED FOR UNKNOWN INDICATION
     Dosage: 10 MG, OD
  2. ALENDRONIC ACID [Suspect]
     Indication: PRODUCT USED FOR UNKNOWN INDICATION
     Dosage: UNK
  3. FEXOFENADINE [Suspect]
     Indication: ASTHMA
     Dosage: 180 MG, UNK
     Route: 048
  4. SPIRIVA [Suspect]
     Indication: ASTHMA
     Dosage: UNK
  5. SYMBICORT [Suspect]
     Indication: ASTHMA
     Dosage: UNK, BID
  6. THEOPHYLLINE [Suspect]
     Indication: ASTHMA
     Dosage: 500 MG, UNK
     Route: 048
  7. XOLAIR [Suspect]
     Indication: ASTHMA
     Dosage: 600 MG, UNK
     Route: 058

REACTIONS (3)
  - Haemorrhage [Recovered/Resolved]
  - Skin infection [Recovering/Resolving]
  - Maternal exposure during pregnancy [Unknown]
